FAERS Safety Report 14318584 (Version 1)
Quarter: 2017Q4

REPORT INFORMATION
  Report Type: Spontaneous
  Country: CN (occurrence: CN)
  Receive Date: 20171222
  Receipt Date: 20171222
  Transmission Date: 20180321
  Serious: Yes (Other)
  Sender: FDA-Public Use
  Company Number: CN-PURDUE-GBR-2017-0051274

PATIENT
  Age: 58 Year
  Sex: Female
  Weight: 46 kg

DRUGS (1)
  1. OXYCONTIN [Suspect]
     Active Substance: OXYCODONE HYDROCHLORIDE
     Indication: PAIN
     Dosage: 40 MG, Q12H
     Route: 048
     Dates: start: 20170910, end: 20170920

REACTIONS (4)
  - Dysuria [Recovering/Resolving]
  - Thinking abnormal [Recovering/Resolving]
  - Speech disorder [Recovering/Resolving]
  - Trance [Recovering/Resolving]

NARRATIVE: CASE EVENT DATE: 20170917
